FAERS Safety Report 5514087-6 (Version None)
Quarter: 2007Q4

REPORT INFORMATION
  Report Type: 
  Country: None (occurrence: None)
  Receive Date: 20071113
  Receipt Date: 20071101
  Transmission Date: 20080405
  Serious: Yes (Other)
  Sender: FDA-Public Use
  Company Number: US-AMGEN-US250727

PATIENT
  Sex: Female

DRUGS (7)
  1. ENBREL [Suspect]
     Indication: RHEUMATOID ARTHRITIS
     Route: 058
     Dates: start: 20030611
  2. LOTREL [Concomitant]
     Route: 065
     Dates: start: 20000715
  3. ADVIL LIQUI-GELS [Concomitant]
     Route: 065
     Dates: start: 20030418
  4. FOLIC ACID [Concomitant]
     Route: 065
     Dates: start: 20040815
  5. CALCIUM [Concomitant]
     Route: 065
     Dates: start: 20040815
  6. VITAMIN B COMPLEX CAP [Concomitant]
     Route: 065
     Dates: start: 20040815
  7. CENTRUM SILVER [Concomitant]
     Route: 065
     Dates: start: 20040815

REACTIONS (2)
  - HYPERSENSITIVITY [None]
  - SOFT TISSUE INFLAMMATION [None]
